FAERS Safety Report 8489509-1 (Version None)
Quarter: 2012Q3

REPORT INFORMATION
  Report Type: 
  Country: None (occurrence: None)
  Receive Date: 20120705
  Receipt Date: 20120702
  Transmission Date: 20120928
  Serious: Yes (Other)
  Sender: FDA-Public Use
  Company Number: CN-BAYER-2012-063589

PATIENT
  Age: 60 Year
  Sex: Male

DRUGS (9)
  1. ALBUTEROL SULATE [Concomitant]
  2. AMBROXOL [Concomitant]
     Dosage: 60 MG, BID
     Route: 042
     Dates: start: 20110812
  3. DOXOFYLLINE [Concomitant]
     Dosage: 200 MG, BID
     Route: 041
  4. CIPROFLOXACIN [Suspect]
     Dosage: 200 MG, BID
     Route: 041
     Dates: start: 20110823, end: 20110824
  5. CEFEPIME [Concomitant]
     Dosage: 1 G, BID
     Route: 041
     Dates: start: 20110824
  6. CEFOPERAZONE W/SULBACTAM [Concomitant]
     Dosage: 1.5 G, BID
     Route: 041
     Dates: start: 20110812, end: 20110823
  7. BUDESONIDE [Concomitant]
  8. FLUCONAZOLE [Concomitant]
     Indication: INFECTION
     Dosage: 400 MG, UNK
     Route: 042
     Dates: start: 20110815
  9. METHYLPREDNISOLONE [Concomitant]
     Dosage: 40 MG, UNK
     Route: 042
     Dates: start: 20110812

REACTIONS (5)
  - EPILEPSY [None]
  - TRISMUS [None]
  - DEPRESSED LEVEL OF CONSCIOUSNESS [None]
  - MUSCLE SPASMS [None]
  - EYE MOVEMENT DISORDER [None]
